FAERS Safety Report 6861686-5 (Version None)
Quarter: 2010Q3

REPORT INFORMATION
  Report Type: 
  Country: None (occurrence: None)
  Receive Date: 20100721
  Receipt Date: 20100712
  Transmission Date: 20110219
  Serious: No
  Sender: FDA-Public Use
  Company Number: US-BIOGENIDEC-2010BI023917

PATIENT
  Sex: Male

DRUGS (2)
  1. TYSABRI [Suspect]
     Indication: MULTIPLE SCLEROSIS
     Route: 042
     Dates: start: 20050218, end: 20050218
  2. TYSABRI [Suspect]
     Route: 042
     Dates: start: 20100419, end: 20100101

REACTIONS (1)
  - INFUSION RELATED REACTION [None]
